FAERS Safety Report 18961891 (Version 2)
Quarter: 2021Q2

REPORT INFORMATION
  Report Type: Spontaneous
  Country: US (occurrence: US)
  Receive Date: 20210303
  Receipt Date: 20210408
  Transmission Date: 20210717
  Serious: Yes (Other)
  Sender: FDA-Public Use
  Company Number: US-BAYER-2021-092419

PATIENT
  Age: 40 Year
  Sex: Female

DRUGS (1)
  1. MIRENA [Suspect]
     Active Substance: LEVONORGESTREL
     Indication: CONTRACEPTION
     Dosage: 20?G PER DAY, CONTINUOUSLY
     Route: 015
     Dates: start: 20210108

REACTIONS (4)
  - Device dislocation [Not Recovered/Not Resolved]
  - Device malfunction [None]
  - Ovarian cyst [None]
  - Abdominal pain lower [None]

NARRATIVE: CASE EVENT DATE: 20210301
